FAERS Safety Report 14466031 (Version 2)
Quarter: 2018Q1

REPORT INFORMATION
  Report Type: Spontaneous
  Country: IT (occurrence: IT)
  Receive Date: 20180131
  Receipt Date: 20180228
  Transmission Date: 20180509
  Serious: Yes (Death)
  Sender: FDA-Public Use
  Company Number: IT-AUROBINDO-AUR-APL-2018-001576

PATIENT
  Age: 60 Year
  Sex: Female

DRUGS (6)
  1. LORAZEPAM. [Suspect]
     Active Substance: LORAZEPAM
     Indication: SCHIZOPHRENIA
     Dosage: 10 MG, DAILY
     Route: 065
  2. CLOZAPINE. [Suspect]
     Active Substance: CLOZAPINE
     Indication: SCHIZOPHRENIA
     Dosage: 300 MG, DAILY
     Route: 065
  3. LORAZEPAM. [Suspect]
     Active Substance: LORAZEPAM
     Dosage: 10 MG, 1X/DAY
  4. CLOZAPINE. [Suspect]
     Active Substance: CLOZAPINE
     Dosage: 300 MG (3 TABLET X 100 MG), QD
  5. LORAZEPAM. [Suspect]
     Active Substance: LORAZEPAM
     Dosage: 10 MG (4 TABLET X2.5 MG), UNK
     Route: 065
  6. CLOZAPINE. [Suspect]
     Active Substance: CLOZAPINE
     Dosage: 300 MG, 1X/DAY

REACTIONS (2)
  - Intentional overdose [Fatal]
  - Completed suicide [Fatal]
